FAERS Safety Report 14129085 (Version 1)
Quarter: 2017Q4

REPORT INFORMATION
  Report Type: Spontaneous
  Country: GB (occurrence: GB)
  Receive Date: 20171026
  Receipt Date: 20171026
  Transmission Date: 20180321
  Serious: Yes (Other)
  Sender: FDA-Public Use
  Company Number: GB-PFIZER INC-2017458287

PATIENT
  Age: 66 Year
  Sex: Male
  Weight: 71 kg

DRUGS (4)
  1. FENOFIBRATE. [Concomitant]
     Active Substance: FENOFIBRATE
     Dosage: 67 MG, UNK
  2. IBUPROFEN. [Suspect]
     Active Substance: IBUPROFEN
     Indication: GOUT
     Dosage: 400 MG, 3X/DAY
     Route: 048
     Dates: start: 20170810, end: 20170815
  3. ATORVASTATIN [Concomitant]
     Active Substance: ATORVASTATIN
     Dosage: 20 MG, UNK
  4. ASPIRIN (E.C.) [Concomitant]
     Active Substance: ASPIRIN
     Dosage: 75 MG, UNK

REACTIONS (6)
  - Heart valve incompetence [Recovered/Resolved with Sequelae]
  - Abnormal weight gain [Unknown]
  - Pain [Unknown]
  - Chest discomfort [Unknown]
  - Dyspnoea [Unknown]
  - Abdominal distension [Unknown]

NARRATIVE: CASE EVENT DATE: 2017
